FAERS Safety Report 16362088 (Version 2)
Quarter: 2019Q2

REPORT INFORMATION
  Report Type: Spontaneous
  Country: US (occurrence: US)
  Receive Date: 20190528
  Receipt Date: 20190613
  Transmission Date: 20190711
  Serious: No
  Sender: FDA-Public Use
  Company Number: US-PFIZER INC-2019225790

PATIENT
  Age: 73 Year
  Sex: Female

DRUGS (3)
  1. PREGABALIN. [Suspect]
     Active Substance: PREGABALIN
     Dosage: UNK, 2X/DAY (ONE IN THE MORNING AND ONE AT NIGHT FOR A WEEK)
  2. PREGABALIN. [Suspect]
     Active Substance: PREGABALIN
     Dosage: UNK, 3X/DAY (ONE IN THE MORNING, ONE AT MIDDAY AND ONE AT NIGHT)
  3. PREGABALIN. [Suspect]
     Active Substance: PREGABALIN
     Indication: TRIGEMINAL NEURALGIA
     Dosage: UNK, 1X/DAY(ONE EVERY NIGHT BEFORE BED FOR A WEEK)
     Dates: start: 2018

REACTIONS (6)
  - Feeling abnormal [Unknown]
  - Somnolence [Unknown]
  - Limb discomfort [Unknown]
  - Impaired work ability [Unknown]
  - Drug ineffective [Unknown]
  - Hypokinesia [Unknown]
